FAERS Safety Report 9560128 (Version 1)
Quarter: 2013Q3

REPORT INFORMATION
  Report Type: Spontaneous
  Country: US (occurrence: US)
  Receive Date: 20130927
  Receipt Date: 20130927
  Transmission Date: 20140515
  Serious: No
  Sender: FDA-Public Use
  Company Number: US-BIOGENIDEC-2013BI047524

PATIENT
  Age: 56 Year
  Sex: Male

DRUGS (4)
  1. TECFIDERA [Suspect]
     Indication: MULTIPLE SCLEROSIS
  2. CYMBALTA [Concomitant]
  3. CLINDAMYCIN HCL [Concomitant]
  4. AMIODARONE HCL [Concomitant]

REACTIONS (3)
  - Flushing [Unknown]
  - Nausea [Unknown]
  - Urinary tract infection [Unknown]
